FAERS Safety Report 8618847-4 (Version None)
Quarter: 2012Q3

REPORT INFORMATION
  Report Type: 
  Country: None (occurrence: None)
  Receive Date: 20120810
  Receipt Date: 20120726
  Transmission Date: 20120928
  Serious: Yes (Other)
  Sender: FDA-Public Use
  Company Number: TPA2012A00621

PATIENT
  Age: 59 Year
  Sex: Male

DRUGS (4)
  1. DIABETA [Concomitant]
  2. AVANDIA [Concomitant]
  3. JANUVIA [Concomitant]
  4. ACTOS [Suspect]
     Indication: TYPE 2 DIABETES MELLITUS
     Dosage: 45 MG
     Dates: start: 20070701, end: 20080901

REACTIONS (3)
  - LUNG CANCER METASTATIC [None]
  - BLADDER CANCER [None]
  - RENAL CANCER [None]
